FAERS Safety Report 24765231 (Version 1)
Quarter: 2024Q4

REPORT INFORMATION
  Report Type: Spontaneous
  Country: US (occurrence: None)
  Receive Date: 20241219
  Receipt Date: 20241219
  Transmission Date: 20250115
  Serious: Yes (Hospitalization)
  Sender: Public
  Company Number: None

PATIENT
  Age: 94 Year
  Sex: Male

DRUGS (2)
  1. FUROSEMIDE [Suspect]
     Active Substance: FUROSEMIDE
     Indication: Acute kidney injury
  2. PREGABALIN [Suspect]
     Active Substance: PREGABALIN

REACTIONS (6)
  - Hypophagia [None]
  - Acute myocardial infarction [None]
  - Acute myocardial infarction [None]
  - Acute kidney injury [None]
  - Drug clearance decreased [None]
  - Encephalopathy [None]

NARRATIVE: CASE EVENT DATE: 20241028
